FAERS Safety Report 9999307 (Version 1)
Quarter: 2014Q1

REPORT INFORMATION
  Report Type: Spontaneous
  Country: US (occurrence: None)
  Receive Date: 20140311
  Receipt Date: 20140311
  Transmission Date: 20141002
  Serious: Yes (Other)
  Sender: FDA-Public Use
  Company Number: None

PATIENT
  Age: 88 Year
  Sex: Male
  Weight: 70.31 kg

DRUGS (1)
  1. TEMAZEPAM [Suspect]
     Indication: SLEEP DISORDER
     Dosage: ONE?AS NEEDED ?TAKEN BY MOUTH??SEVERAK MONTHS
     Route: 048

REACTIONS (6)
  - Drug withdrawal syndrome [None]
  - Heart rate increased [None]
  - Feeling abnormal [None]
  - Hypoaesthesia [None]
  - Paraesthesia [None]
  - Insomnia [None]
